FAERS Safety Report 8298301-2 (Version None)
Quarter: 2012Q2

REPORT INFORMATION
  Report Type: 
  Country: None (occurrence: None)
  Receive Date: 20120419
  Receipt Date: 20120404
  Transmission Date: 20120825
  Serious: Yes (Hospitalization, Other)
  Sender: FDA-Public Use
  Company Number: US-ROCHE-1056864

PATIENT
  Sex: Female
  Weight: 73.548 kg

DRUGS (7)
  1. DIFLUCAN [Concomitant]
     Route: 048
  2. ZOLOFT [Suspect]
     Indication: DEPRESSION
     Route: 048
     Dates: start: 20100101, end: 20120226
  3. ATIVAN [Concomitant]
     Indication: PERFORATED ULCER
  4. ATIVAN [Concomitant]
     Indication: PAIN
     Route: 048
  5. KLONOPIN [Suspect]
     Indication: DEPRESSION
     Route: 048
     Dates: start: 20120101
  6. VISTARIL [Suspect]
     Indication: PRODUCT USED FOR UNKNOWN INDICATION
     Route: 048
     Dates: start: 20120101
  7. XANAX [Concomitant]
     Indication: ANXIETY
     Route: 048
     Dates: end: 20120226

REACTIONS (9)
  - MALAISE [None]
  - FATIGUE [None]
  - DEPRESSION [None]
  - SOMNOLENCE [None]
  - NAUSEA [None]
  - HEADACHE [None]
  - DIZZINESS [None]
  - VOMITING [None]
  - HYPERSOMNIA [None]
